FAERS Safety Report 10802111 (Version 2)
Quarter: 2015Q1

REPORT INFORMATION
  Report Type: Spontaneous
  Country: FR (occurrence: FR)
  Receive Date: 20150217
  Receipt Date: 20150316
  Transmission Date: 20150721
  Serious: Yes (Hospitalization)
  Sender: FDA-Public Use
  Company Number: FR-TEVA-539350ISR

PATIENT
  Age: 63 Year
  Sex: Male

DRUGS (5)
  1. AMOXICILLINE TEVA [Suspect]
     Active Substance: AMOXICILLIN
     Dosage: 3 GRAM DAILY;
     Route: 048
     Dates: start: 20141219, end: 20150102
  2. HYDROCORTISONE. [Concomitant]
     Active Substance: HYDROCORTISONE
     Indication: ADRENAL INSUFFICIENCY
  3. PANTOPRAZOLE ACTAVIS 20 MG [Suspect]
     Active Substance: PANTOPRAZOLE SODIUM
     Dosage: 20 MILLIGRAM DAILY;
     Route: 048
     Dates: start: 20141211, end: 20150102
  4. VITAMINE B1-B6 [Concomitant]
     Dates: start: 20141229, end: 20150102
  5. DOMPERIDONE [Concomitant]
     Active Substance: DOMPERIDONE
     Dates: start: 20141229, end: 20150102

REACTIONS (5)
  - Electrocardiogram QT prolonged [Unknown]
  - Eosinophilia [Not Recovered/Not Resolved]
  - Renal failure [Recovering/Resolving]
  - Pruritus [Recovered/Resolved]
  - Rash erythematous [Recovered/Resolved]

NARRATIVE: CASE EVENT DATE: 20141231
